FAERS Safety Report 10673862 (Version 1)
Quarter: 2014Q4

REPORT INFORMATION
  Report Type: Spontaneous
  Country: US (occurrence: None)
  Receive Date: 20141222
  Receipt Date: 20141222
  Transmission Date: 20150529
  Serious: Yes (Death, Hospitalization)
  Sender: FDA-Public Use
  Company Number: 2014/093

PATIENT
  Age: 26 Year
  Sex: Male

DRUGS (3)
  1. METOPROLOL [Suspect]
     Active Substance: METOPROLOL
  2. AMLODIPINE [Suspect]
     Active Substance: AMLODIPINE BESYLATE
  3. LISINOPRIL. [Suspect]
     Active Substance: LISINOPRIL

REACTIONS (9)
  - Pulmonary oedema [None]
  - Blood sodium decreased [None]
  - Intentional overdose [None]
  - Hypotension [None]
  - Hyperkalaemia [None]
  - Acute kidney injury [None]
  - Bradycardia [None]
  - Base excess [None]
  - Hypoxia [None]
